APPROVED DRUG PRODUCT: DUTASTERIDE
Active Ingredient: DUTASTERIDE
Strength: 0.5MG
Dosage Form/Route: CAPSULE;ORAL
Application: A208227 | Product #001
Applicant: STRIDES PHARMA GLOBAL PTE LTD
Approved: Jun 22, 2018 | RLD: No | RS: No | Type: DISCN